FAERS Safety Report 17718678 (Version 3)
Quarter: 2020Q3

REPORT INFORMATION
  Report Type: Report from Study
  Country: US (occurrence: US)
  Receive Date: 20200428
  Receipt Date: 20200709
  Transmission Date: 20201102
  Serious: Yes (Other)
  Sender: FDA-Public Use
  Company Number: US-CLOVIS ONCOLOGY-CLO-2020-000777

PATIENT
  Age: 69 Year
  Sex: Female

DRUGS (2)
  1. RUBRACA [Suspect]
     Active Substance: RUCAPARIB CAMSYLATE
     Dosage: 600 MG, BID
     Route: 048
     Dates: start: 20200408
  2. RUBRACA [Suspect]
     Active Substance: RUCAPARIB CAMSYLATE
     Indication: OVARIAN CANCER
     Dosage: 600MG AM, 300MG PM
     Route: 048
     Dates: start: 20200408

REACTIONS (5)
  - Urinary tract infection [Recovered/Resolved]
  - Dyspnoea [Unknown]
  - Cardiac failure [Unknown]
  - Urinary tract infection [Unknown]
  - Dizziness [Unknown]

NARRATIVE: CASE EVENT DATE: 2020
